FAERS Safety Report 11419063 (Version 2)
Quarter: 2015Q3

REPORT INFORMATION
  Report Type: Other
  Country: US (occurrence: US)
  Receive Date: 20150826
  Receipt Date: 20150925
  Transmission Date: 20151125
  Serious: Yes (Other)
  Sender: FDA-Public Use
  Company Number: US-SHIRE-US201510305

PATIENT
  Age: 32 Year
  Sex: Female
  Weight: 51.25 kg

DRUGS (2)
  1. CINRYZE [Suspect]
     Active Substance: HUMAN C1-ESTERASE INHIBITOR
     Indication: PROPHYLAXIS
  2. CINRYZE [Suspect]
     Active Substance: HUMAN C1-ESTERASE INHIBITOR
     Indication: HEREDITARY ANGIOEDEMA
     Dosage: 1000 UNITS, OTHER (EVERY 3 DAYS)
     Route: 042
     Dates: start: 20150325, end: 2015

REACTIONS (4)
  - Suicide attempt [Unknown]
  - Depression [Unknown]
  - Adverse event [Unknown]
  - Anxiety [Unknown]

NARRATIVE: CASE EVENT DATE: 20150811
